FAERS Safety Report 8322289-9 (Version None)
Quarter: 2012Q2

REPORT INFORMATION
  Report Type: 
  Country: None (occurrence: None)
  Receive Date: 20120430
  Receipt Date: 20120420
  Transmission Date: 20120825
  Serious: Yes (Other)
  Sender: FDA-Public Use
  Company Number: PHHY2012PL034213

PATIENT
  Sex: Male

DRUGS (1)
  1. CERTICAN [Suspect]
     Dosage: UNK UKN, UNK

REACTIONS (3)
  - PNEUMONIA [None]
  - LEUKOPENIA [None]
  - RESPIRATORY FAILURE [None]
